FAERS Safety Report 7923046-5 (Version None)
Quarter: 2011Q4

REPORT INFORMATION
  Report Type: 
  Country: None (occurrence: None)
  Receive Date: 20111117
  Receipt Date: 20110127
  Transmission Date: 20120403
  Serious: No
  Sender: FDA-Public Use
  Company Number: US-AMGEN-USASP2011005230

PATIENT
  Age: 69 Year
  Sex: Female

DRUGS (2)
  1. TREXALL [Concomitant]
  2. ENBREL [Suspect]
     Dosage: 50 MG, QWK
     Dates: start: 20070101

REACTIONS (4)
  - NASOPHARYNGITIS [None]
  - INCREASED TENDENCY TO BRUISE [None]
  - WOUND [None]
  - IMPAIRED HEALING [None]
